FAERS Safety Report 9507292 (Version 1)
Quarter: 2013Q1

REPORT INFORMATION
  Report Type: Spontaneous
  Country: US (occurrence: None)
  Receive Date: 20130305
  Receipt Date: 20130305
  Transmission Date: 20140127
  Serious: Yes (Other)
  Sender: FDA-Public Use
  Company Number: 163-21880-08011536

PATIENT
  Age: 68 Year
  Sex: Female
  Weight: 71.22 kg

DRUGS (11)
  1. REVLIMID (LENALIDOMIDE) (25 MILLIGRAM, CAPSULES) [Suspect]
     Indication: PLASMA CELL MYELOMA
     Route: 048
     Dates: start: 20070216, end: 20070306
  2. LEVAQUIN (LEVOFLOXACIN) [Concomitant]
  3. CALCIUM (CALCIUM) [Concomitant]
  4. COMPAZINE (PROCHLORPERAZINE EDISYLATE) [Concomitant]
  5. PRILOSEC [Concomitant]
  6. ARANESP (DARBEPOETIN) [Concomitant]
  7. DECADRON (DEXAMETHASONE) [Concomitant]
  8. CENTRUM SILVER (CENTRUM SILVER) [Concomitant]
  9. ZOMETA (ZOLEDRONIC ACID) [Concomitant]
  10. FERROUS SULFATE (FERROUS SULFATE) [Concomitant]
  11. HYDROCODONE/APAP (VICODIN) [Concomitant]

REACTIONS (10)
  - Hypersensitivity [None]
  - Eye oedema [None]
  - Face oedema [None]
  - Rash [None]
  - Pruritus [None]
  - Swelling face [None]
  - Urticaria [None]
  - Pancytopenia [None]
  - Muscle spasms [None]
  - Hypoaesthesia [None]
